FAERS Safety Report 21169870 (Version 3)
Quarter: 2022Q3

REPORT INFORMATION
  Report Type: Report from Study
  Country: US (occurrence: US)
  Receive Date: 20220804
  Receipt Date: 20220901
  Transmission Date: 20221027
  Serious: Yes (Other)
  Sender: FDA-Public Use
  Company Number: US-GILEAD-2022-0592016

PATIENT
  Age: 40 Year
  Sex: Female

DRUGS (14)
  1. AZTREONAM LYSINE [Suspect]
     Active Substance: AZTREONAM LYSINE
     Indication: Cystic fibrosis lung
     Dosage: 75 MG, TID FOR 28 DAYS ON AND 28 DAYS OFF
     Route: 055
  2. PULMOZYME [Concomitant]
     Active Substance: DORNASE ALFA
  3. COBAMAMIDE [Concomitant]
     Active Substance: COBAMAMIDE
  4. CIPRO [Concomitant]
     Active Substance: CIPROFLOXACIN HYDROCHLORIDE
  5. CREON [Concomitant]
     Active Substance: PANCRELIPASE AMYLASE\PANCRELIPASE LIPASE\PANCRELIPASE PROTEASE
  6. TOBRAMYCIN [Concomitant]
     Active Substance: TOBRAMYCIN
  7. ALBUTEROL SULFATE [Concomitant]
     Active Substance: ALBUTEROL SULFATE
  8. AZITHROMYCIN [Concomitant]
     Active Substance: AZITHROMYCIN
  9. FOLIC ACID [Concomitant]
     Active Substance: FOLIC ACID
  10. ZYRTEC [Concomitant]
     Active Substance: CETIRIZINE HYDROCHLORIDE
  11. VALACYCLOVIR [Concomitant]
     Active Substance: VALACYCLOVIR HYDROCHLORIDE
  12. KEPPRA [Concomitant]
     Active Substance: LEVETIRACETAM
  13. FAMOTIDINE [Concomitant]
     Active Substance: FAMOTIDINE
  14. VITAMIN D2 [Concomitant]
     Active Substance: ERGOCALCIFEROL

REACTIONS (2)
  - Cystic fibrosis [Unknown]
  - Pneumonia [Not Recovered/Not Resolved]
